FAERS Safety Report 19441175 (Version 1)
Quarter: 2021Q2

REPORT INFORMATION
  Report Type: Spontaneous
  Country: US (occurrence: US)
  Receive Date: 20210617
  Receipt Date: 20210617
  Transmission Date: 20210717
  Serious: Yes (Death)
  Sender: FDA-Public Use
  Company Number: None

PATIENT
  Age: 76 Year
  Sex: Male

DRUGS (19)
  1. PERFORMIST NEB 20MCG [Concomitant]
     Dates: start: 20210228
  2. ATORVASTATIN TAB 40MG [Concomitant]
     Active Substance: ATORVASTATIN
     Dates: start: 20210228
  3. DALIRESP TAB 500MCG [Concomitant]
     Dates: start: 20210228
  4. ALLOPURINOL TAB 100MG [Concomitant]
     Dates: start: 20210228
  5. ZYRTEC ALLGY TAB 10MG [Concomitant]
     Dates: start: 20200706
  6. TORSEMIDE TAB 20MG [Concomitant]
     Dates: start: 20210228
  7. ESCITALOPRAM TAB 5MG [Concomitant]
     Dates: start: 20210228
  8. SILDENAFIL. [Suspect]
     Active Substance: SILDENAFIL
     Route: 048
     Dates: start: 20200629
  9. AZITHROMYCIN TAB 500MG [Concomitant]
     Dates: start: 20200706
  10. GLIPIZIDE TAB 5MG [Concomitant]
     Dates: start: 20210228
  11. CARVEDILOL TAB 25MG [Concomitant]
     Dates: start: 20210228
  12. PANTOPRAZOLE TAB 40MG [Concomitant]
     Dates: start: 20210228
  13. SPIRONOLACT TAB 25MG [Concomitant]
     Dates: start: 20210228
  14. BREO ELLIPTA INH 200?25 [Concomitant]
     Dates: start: 20210228
  15. FAMOTIDINE TAB 20MG [Concomitant]
     Dates: start: 20210228
  16. ELIQUIS [Concomitant]
     Active Substance: APIXABAN
     Dates: start: 20200617
  17. YUPELRI SOL [Concomitant]
     Dates: start: 20210228
  18. BUDESONIDE SUS 0.5MG/2 [Concomitant]
     Dates: start: 20210228
  19. LEVOTHYROXIN TAB 75MCG [Concomitant]
     Dates: start: 20210228

REACTIONS (1)
  - Death [None]

NARRATIVE: CASE EVENT DATE: 20210616
